FAERS Safety Report 9509995 (Version 1)
Quarter: 2013Q3

REPORT INFORMATION
  Report Type: Spontaneous
  Country: US (occurrence: US)
  Receive Date: 20130909
  Receipt Date: 20130909
  Transmission Date: 20140515
  Serious: No
  Sender: FDA-Public Use
  Company Number: US-BRISTOL-MYERS SQUIBB COMPANY-18876060

PATIENT
  Age: 67 Year
  Sex: Male
  Weight: 95.24 kg

DRUGS (2)
  1. ABILIFY [Suspect]
     Indication: BIPOLAR I DISORDER
     Dosage: 1DF:5MG-7.5MG DAILY QHS.?RAHSUT: 08-09/2005-118/32
  2. LAMOTRIGINE [Concomitant]

REACTIONS (2)
  - Suspected counterfeit product [Unknown]
  - Abnormal behaviour [Unknown]
